FAERS Safety Report 21310400 (Version 2)
Quarter: 2022Q4

REPORT INFORMATION
  Report Type: Spontaneous
  Country: US (occurrence: US)
  Receive Date: 20220909
  Receipt Date: 20221001
  Transmission Date: 20230113
  Serious: No
  Sender: FDA-Public Use
  Company Number: US-UNITED THERAPEUTICS-UNT-2022-020242

PATIENT
  Age: 3 Year
  Sex: Male

DRUGS (6)
  1. REMODULIN [Suspect]
     Active Substance: TREPROSTINIL
     Indication: Pulmonary hypertension
     Dosage: UNK, CONTINUING
     Route: 058
     Dates: start: 20201107
  2. REMODULIN [Suspect]
     Active Substance: TREPROSTINIL
     Dosage: 0.0535 ?G/KG, CONTINUING
     Route: 058
     Dates: start: 20210113
  3. LETAIRIS [Concomitant]
     Active Substance: AMBRISENTAN
     Indication: Pulmonary hypertension
     Dosage: 2.5 MG, QD (DISSOLVE ONE HALF TABLET IN 1-2 ML OF WATER AND TAKE FULL VOLUME BY MOUTH ONCE DAILY)
     Route: 048
     Dates: start: 20210904
  4. UPTRAVI [Concomitant]
     Active Substance: SELEXIPAG
     Indication: Pulmonary hypertension
     Dosage: 100 ?G, BID (100 ?G IN 5ML APPLE JUICE TO HIGHEST TOLERATED DOSE OF 400 ?G TWICE DAILY)
     Route: 048
     Dates: start: 20220827
  5. UPTRAVI [Concomitant]
     Active Substance: SELEXIPAG
     Dosage: 300 ?G, BID
     Route: 048
     Dates: start: 2022
  6. TADALAFIL [Concomitant]
     Active Substance: TADALAFIL
     Indication: Pulmonary hypertension
     Dosage: 10 MG, QD
     Route: 065
     Dates: start: 202208

REACTIONS (2)
  - Weight increased [Unknown]
  - Nausea [Unknown]
